FAERS Safety Report 11775058 (Version 1)
Quarter: 2015Q4

REPORT INFORMATION
  Report Type: Spontaneous
  Country: US (occurrence: US)
  Receive Date: 20151124
  Receipt Date: 20151124
  Transmission Date: 20160304
  Serious: Yes (Hospitalization)
  Sender: FDA-Public Use
  Company Number: US-ACTELION-A-US2015-113418

PATIENT
  Age: 80 Year
  Sex: Male

DRUGS (2)
  1. VELETRI [Suspect]
     Active Substance: EPOPROSTENOL
     Indication: PULMONARY ARTERIAL HYPERTENSION
     Dosage: 13.5 NG/KG, PER MIN
     Route: 041
     Dates: start: 20130719
  2. ADCIRCA [Concomitant]
     Active Substance: TADALAFIL

REACTIONS (5)
  - Catheter site cellulitis [Unknown]
  - Catheter site pain [Unknown]
  - Catheter site erythema [Unknown]
  - Catheter site haemorrhage [Unknown]
  - Catheter site pruritus [Unknown]
